FAERS Safety Report 18443782 (Version 1)
Quarter: 2020Q4

REPORT INFORMATION
  Report Type: Spontaneous
  Country: US (occurrence: US)
  Receive Date: 20201029
  Receipt Date: 20201029
  Transmission Date: 20210114
  Serious: No
  Sender: FDA-Public Use
  Company Number: US-009507513-2010USA001880

PATIENT
  Age: 26 Year
  Sex: Female

DRUGS (2)
  1. TEMODAR [Suspect]
     Active Substance: TEMOZOLOMIDE
     Indication: EWING-LIKE SARCOMA
  2. TEMODAR [Suspect]
     Active Substance: TEMOZOLOMIDE
     Indication: UNDIFFERENTIATED SARCOMA
     Route: 048

REACTIONS (1)
  - Product use in unapproved indication [Unknown]
